FAERS Safety Report 5234398-1 (Version None)
Quarter: 2007Q1

REPORT INFORMATION
  Report Type: 
  Country: None (occurrence: None)
  Receive Date: 20070207
  Receipt Date: 20070207
  Transmission Date: 20070707
  Serious: Yes (Hospitalization)
  Sender: FDA-Public Use
  Company Number: None

PATIENT
  Sex: Female
  Weight: 49.59 kg

DRUGS (1)
  1. TAXOL [Suspect]
     Dosage: 1185.75 MG

REACTIONS (2)
  - HYDRONEPHROSIS [None]
  - SCAR [None]
